FAERS Safety Report 7131213-6 (Version None)
Quarter: 2010Q4

REPORT INFORMATION
  Report Type: 
  Country: None (occurrence: None)
  Receive Date: 20101124
  Receipt Date: 20101124
  Transmission Date: 20110411
  Serious: Yes (Other)
  Sender: FDA-Public Use
  Company Number: None

PATIENT
  Sex: Male
  Weight: 91.35 kg

DRUGS (26)
  1. PACLITAXEL [Suspect]
     Indication: PROSTATE CANCER
     Dosage: 180MG -90MG/M2- ONCE IV DRIP
     Route: 041
     Dates: start: 20101123, end: 20101123
  2. CYANOCOBALAMIN [Concomitant]
  3. ZOLEDRONIC ACID [Concomitant]
  4. PROMETHAZINE HCL [Concomitant]
  5. PRENATAL VITAMINS [Concomitant]
  6. SENNA [Concomitant]
  7. PREDNISONE [Concomitant]
  8. LUNESTA [Concomitant]
  9. AMOXICILLIN [Concomitant]
  10. LORTAB [Concomitant]
  11. CYSTEX [Concomitant]
  12. LANSOPRAZOLE [Concomitant]
  13. MOBIC [Concomitant]
  14. COLACE [Concomitant]
  15. VITAMIN B-12 [Concomitant]
  16. DRAMAMINE [Concomitant]
  17. CASODEX [Concomitant]
  18. BENZONATATE [Concomitant]
  19. REGLAN [Concomitant]
  20. ATIVAN [Concomitant]
  21. FLOMAX [Concomitant]
  22. OXYCONTIN [Concomitant]
  23. EFFEXOR [Concomitant]
  24. METOPROLOL SUCCINATE [Concomitant]
  25. COZAAR [Concomitant]
  26. COUMADIN [Concomitant]

REACTIONS (6)
  - CHEST DISCOMFORT [None]
  - ERYTHEMA [None]
  - FEELING HOT [None]
  - FLUSHING [None]
  - NAUSEA [None]
  - VISUAL IMPAIRMENT [None]
